FAERS Safety Report 15400216 (Version 1)
Quarter: 2018Q3

REPORT INFORMATION
  Report Type: Spontaneous
  Country: US (occurrence: US)
  Receive Date: 20180919
  Receipt Date: 20180919
  Transmission Date: 20181010
  Serious: No
  Sender: FDA-Public Use
  Company Number: US-BION-006785

PATIENT
  Age: 71 Year
  Sex: Male
  Weight: 86.18 kg

DRUGS (8)
  1. LANTUS [Concomitant]
     Active Substance: INSULIN GLARGINE
     Indication: DIABETES MELLITUS
  2. ASCORBIC ACID/ERGOCALCIFEROL/FOLIC ACID/NICOTINAMIDE/PANTHENOL/RETINOL/RIBOFLAVIN/THIAMINE HYDROCHLO [Concomitant]
  3. TOCOPHEROL [Concomitant]
     Active Substance: TOCOPHEROL
     Indication: VITAMIN SUPPLEMENTATION
  4. HUMALOG [Concomitant]
     Active Substance: INSULIN LISPRO
     Indication: DIABETES MELLITUS
  5. ZYRTEC [Suspect]
     Active Substance: CETIRIZINE HYDROCHLORIDE
     Indication: HYPERSENSITIVITY
     Dosage: 1 LIQUID GEL ONE TIME
     Route: 048
     Dates: start: 20171120
  6. ACETYLSALICYLIC ACID [Concomitant]
     Active Substance: ASPIRIN
  7. ASCORBIC ACID. [Concomitant]
     Active Substance: ASCORBIC ACID
  8. IRON [Concomitant]
     Active Substance: IRON

REACTIONS (1)
  - Drug effect incomplete [Not Recovered/Not Resolved]
